FAERS Safety Report 12571469 (Version 1)
Quarter: 2016Q3

REPORT INFORMATION
  Report Type: Spontaneous
  Country: NL (occurrence: NL)
  Receive Date: 20160719
  Receipt Date: 20160719
  Transmission Date: 20161109
  Serious: Yes (Hospitalization)
  Sender: FDA-Public Use
  Company Number: NL-BAYER-2016-135158

PATIENT
  Age: 73 Year
  Sex: Female

DRUGS (8)
  1. ACENOCOUMAROL [Interacting]
     Active Substance: ACENOCOUMAROL
     Indication: ATRIAL FIBRILLATION
     Dosage: UNK
     Dates: start: 20160119
  2. EZETIMIBE. [Concomitant]
     Active Substance: EZETIMIBE
     Indication: HYPERCHOLESTEROLAEMIA
     Dosage: 10 MG, QD
     Route: 048
     Dates: start: 20130610
  3. BUMETANIDE. [Concomitant]
     Active Substance: BUMETANIDE
     Indication: HYPERTENSION
     Dosage: 1 MG, QD
     Route: 048
     Dates: start: 20110427
  4. SPIRONOLACTON [Concomitant]
     Active Substance: SPIRONOLACTONE
     Indication: HYPERTENSION
     Dosage: 25 MG, QD
     Route: 048
     Dates: start: 20110427
  5. VERAPAMIL [Concomitant]
     Active Substance: VERAPAMIL HYDROCHLORIDE
     Indication: ATRIAL FIBRILLATION
     Dosage: 120 MG, QD
     Route: 048
     Dates: start: 20110516
  6. ACETYLSALICYLIC ACID({=100 MG) [Suspect]
     Active Substance: ASPIRIN
     Indication: JOINT STIFFNESS
     Dosage: 80 MG, QD
     Route: 048
     Dates: start: 20110519, end: 20160116
  7. ACENOCOUMAROL [Interacting]
     Active Substance: ACENOCOUMAROL
     Indication: ATRIAL FIBRILLATION
     Dosage: 1 MG, QD
     Route: 048
     Dates: start: 20020208, end: 20160116
  8. ACETYLSALICYLIC ACID({=100 MG) [Interacting]
     Active Substance: ASPIRIN
     Indication: JOINT STIFFNESS
     Dosage: UNK
     Dates: start: 20160119

REACTIONS (6)
  - Gastritis [Recovered/Resolved]
  - Drug administration error [Recovered/Resolved]
  - Vaginal haemorrhage [Not Recovered/Not Resolved]
  - Gastrointestinal haemorrhage [Recovered/Resolved]
  - Endometrial hyperplasia [Recovered/Resolved]
  - Labelled drug-drug interaction medication error [Recovered/Resolved]

NARRATIVE: CASE EVENT DATE: 20160115
